FAERS Safety Report 13296716 (Version 1)
Quarter: 2017Q1

REPORT INFORMATION
  Report Type: Spontaneous
  Country: ZA (occurrence: ZA)
  Receive Date: 20170306
  Receipt Date: 20170306
  Transmission Date: 20170428
  Serious: Yes (Hospitalization)
  Sender: FDA-Public Use
  Company Number: ZA-AMGEN-ZAFSP2017033572

PATIENT
  Sex: Male

DRUGS (1)
  1. ENBREL [Suspect]
     Active Substance: ETANERCEPT
     Indication: ANKYLOSING SPONDYLITIS
     Dosage: 50 MG, WEEKLY
     Route: 058

REACTIONS (1)
  - Condition aggravated [Unknown]
